FAERS Safety Report 5556382-0 (Version None)
Quarter: 2007Q4

REPORT INFORMATION
  Report Type: 
  Country: None (occurrence: None)
  Receive Date: 20071213
  Receipt Date: 20070912
  Transmission Date: 20080405
  Serious: No
  Sender: FDA-Public Use
  Company Number: US-AMGEN-KDL241716

PATIENT
  Sex: Female
  Weight: 64.5 kg

DRUGS (9)
  1. ENBREL [Suspect]
     Indication: RHEUMATOID ARTHRITIS
     Route: 058
     Dates: start: 20070813
  2. METHOTREXATE [Concomitant]
     Dates: start: 20070718
  3. LEXAPRO [Concomitant]
  4. AMBIEN [Concomitant]
  5. FOLIC ACID [Concomitant]
     Dates: start: 20070718
  6. FISH OIL [Concomitant]
  7. VITAMIN CAP [Concomitant]
  8. TRAMADOL HCL [Concomitant]
  9. DARVOCET [Concomitant]
     Dates: start: 20070815

REACTIONS (2)
  - RASH [None]
  - SWELLING FACE [None]
